FAERS Safety Report 11636218 (Version 4)
Quarter: 2016Q2

REPORT INFORMATION
  Report Type: Spontaneous
  Country: US (occurrence: US)
  Receive Date: 20151016
  Receipt Date: 20160517
  Transmission Date: 20160815
  Serious: Yes (Hospitalization)
  Sender: FDA-Public Use
  Company Number: US-BAYER-2015-442003

PATIENT
  Age: 20 Year
  Sex: Female
  Weight: 86.17 kg

DRUGS (2)
  1. MIRENA [Suspect]
     Active Substance: LEVONORGESTREL
     Indication: MENORRHAGIA
  2. MIRENA [Suspect]
     Active Substance: LEVONORGESTREL
     Indication: CONTRACEPTION
     Dosage: 20 MCG/24HR, CONT
     Route: 015
     Dates: start: 200910, end: 200911

REACTIONS (15)
  - Headache [None]
  - Migraine [None]
  - Pain [None]
  - Anxiety [None]
  - Benign intracranial hypertension [None]
  - Emotional distress [None]
  - Syncope [None]
  - Depression [None]
  - Confusional state [None]
  - Visual impairment [None]
  - Vision blurred [None]
  - Injury [None]
  - Diplopia [None]
  - Vertigo [None]
  - Amnesia [None]

NARRATIVE: CASE EVENT DATE: 2009
